FAERS Safety Report 8463404-6 (Version None)
Quarter: 2012Q2

REPORT INFORMATION
  Report Type: 
  Country: None (occurrence: None)
  Receive Date: 20120625
  Receipt Date: 20120620
  Transmission Date: 20120825
  Serious: No
  Sender: FDA-Public Use
  Company Number: US-BAYER-2012-061557

PATIENT
  Age: 50 Year
  Sex: Female
  Weight: 113 kg

DRUGS (5)
  1. VITAMIN B6 [Concomitant]
  2. ALEVE (CAPLET) [Suspect]
     Dosage: 2 DF, QD
     Route: 048
     Dates: start: 20120601
  3. LIPITOR [Concomitant]
  4. ALLEGRA [Concomitant]
  5. ALEVE (CAPLET) [Suspect]
     Dosage: 4 DF, UNK
     Dates: start: 20120620, end: 20120620

REACTIONS (1)
  - DIZZINESS [None]
